FAERS Safety Report 21680382 (Version 3)
Quarter: 2023Q1

REPORT INFORMATION
  Report Type: Spontaneous
  Country: US (occurrence: US)
  Receive Date: 20221205
  Receipt Date: 20230125
  Transmission Date: 20230418
  Serious: Yes (Other)
  Sender: FDA-Public Use
  Company Number: US-ORGANON-O2211USA002652

PATIENT
  Sex: Female

DRUGS (1)
  1. IMPLANON [Suspect]
     Active Substance: ETONOGESTREL
     Dosage: 1 IMPLANT OF 68 MG AT LEFT UPPER ARM
     Dates: start: 2011, end: 20221122

REACTIONS (10)
  - Surgery [Recovered/Resolved]
  - General anaesthesia [Recovered/Resolved]
  - Device dislocation [Recovered/Resolved]
  - Implant site fibrosis [Unknown]
  - Implant site scar [Unknown]
  - Device issue [Recovered/Resolved]
  - Device deployment issue [Recovered/Resolved]
  - Device placement issue [Recovered/Resolved]
  - Complication associated with device [Recovered/Resolved]
  - Incorrect product administration duration [Unknown]

NARRATIVE: CASE EVENT DATE: 20110101
